FAERS Safety Report 21895303 (Version 1)
Quarter: 2023Q1

REPORT INFORMATION
  Report Type: Report from Study
  Country: US (occurrence: US)
  Receive Date: 20230123
  Receipt Date: 20230123
  Transmission Date: 20230418
  Serious: Yes (Disabling, Other)
  Sender: FDA-Public Use
  Company Number: US-ABBVIE-22K-163-4365656-00

PATIENT
  Sex: Male

DRUGS (1)
  1. HUMIRA [Suspect]
     Active Substance: ADALIMUMAB
     Indication: Psoriasis
     Dosage: CITRATE FREE
     Route: 058
     Dates: start: 20210703

REACTIONS (4)
  - Ankle fracture [Unknown]
  - Foot fracture [Not Recovered/Not Resolved]
  - Ligament injury [Unknown]
  - Nerve injury [Unknown]

NARRATIVE: CASE EVENT DATE: 20220101
